FAERS Safety Report 4520170-4 (Version None)
Quarter: 2004Q4

REPORT INFORMATION
  Report Type: 
  Country: None (occurrence: None)
  Receive Date: 20041029
  Receipt Date: 20040308
  Transmission Date: 20050328
  Serious: Yes (Hospitalization)
  Sender: FDA-Public Use
  Company Number: US012854

PATIENT
  Age: 40 Year
  Sex: Male

DRUGS (1)
  1. PROVIGIL [Suspect]

REACTIONS (1)
  - CHEST PAIN [None]
